FAERS Safety Report 17237141 (Version 2)
Quarter: 2020Q1

REPORT INFORMATION
  Report Type: Spontaneous
  Country: US (occurrence: US)
  Receive Date: 20200106
  Receipt Date: 20200108
  Transmission Date: 20200409
  Serious: No
  Sender: FDA-Public Use
  Company Number: US-PFIZER INC-2020001795

PATIENT
  Sex: Female

DRUGS (2)
  1. GLUTEN [Concomitant]
     Active Substance: WHEAT GLUTEN
     Dosage: UNK
  2. METHYLPREDNISOLONE. [Suspect]
     Active Substance: METHYLPREDNISOLONE
     Indication: COELIAC DISEASE
     Dosage: 4 MG, UNK; (ONLY HAVE A LITTLE BIT OF IT BUT NOT DAILY)

REACTIONS (9)
  - Foaming at mouth [Unknown]
  - Nausea [Unknown]
  - Dyspepsia [Unknown]
  - Dysgeusia [Unknown]
  - Diarrhoea [Unknown]
  - Malaise [Unknown]
  - Off label use [Unknown]
  - Product use in unapproved indication [Unknown]
  - Burning sensation [Unknown]
